FAERS Safety Report 5688297-1 (Version None)
Quarter: 2008Q1

REPORT INFORMATION
  Report Type: 
  Country: None (occurrence: None)
  Receive Date: 20080331
  Receipt Date: 20080318
  Transmission Date: 20080703
  Serious: Yes (Other)
  Sender: FDA-Public Use
  Company Number: US-SOLVAY-00208001071

PATIENT
  Age: 19199 Day
  Sex: Male
  Weight: 113.5 kg

DRUGS (6)
  1. HYDROCHLOROTHIAZIDE [Concomitant]
     Indication: BLOOD PRESSURE INCREASED
     Dosage: DAILY DOSE: 12.5 MILLIGRAM(S)
     Route: 048
  2. ANDROGEL [Suspect]
     Indication: ANDROGEN REPLACEMENT THERAPY
     Dosage: DAILY DOSE: 5 GRAM(S) VIA PUMP
     Route: 062
     Dates: start: 20071215, end: 20080212
  3. ANDROGEL [Suspect]
     Dosage: DAILY DOSE: 7.5 GRAM(S) VIA PUMP
     Route: 062
     Dates: start: 20080213
  4. DIOVAN [Concomitant]
     Indication: BLOOD PRESSURE INCREASED
     Dosage: DAILY DOSE: 80 MILLIGRAM(S)
     Route: 048
  5. ATENOLOL [Concomitant]
     Indication: BLOOD PRESSURE INCREASED
     Dosage: DAILY DOSE: 25 MILLIGRAM(S)
     Route: 048
  6. VYTORIN [Concomitant]
     Indication: BLOOD CHOLESTEROL INCREASED
     Dosage: DAILY DOSE: 10/10 MG
     Route: 048

REACTIONS (3)
  - ANGIOEDEMA [None]
  - DRUG INEFFECTIVE [None]
  - NASOPHARYNGITIS [None]
